FAERS Safety Report 7413985-6 (Version None)
Quarter: 2011Q2

REPORT INFORMATION
  Report Type: 
  Country: None (occurrence: None)
  Receive Date: 20110414
  Receipt Date: 20110405
  Transmission Date: 20111010
  Serious: No
  Sender: FDA-Public Use
  Company Number: US-BIOGENIDEC-2011BI012807

PATIENT
  Sex: Male

DRUGS (7)
  1. TYSABRI [Suspect]
     Route: 042
     Dates: end: 20060101
  2. AVONEX [Concomitant]
     Route: 030
     Dates: start: 20090717
  3. AVONEX [Concomitant]
     Indication: MULTIPLE SCLEROSIS
     Route: 030
     Dates: end: 20060601
  4. AVONEX [Concomitant]
     Route: 030
     Dates: start: 20010101
  5. TYSABRI [Suspect]
     Indication: MULTIPLE SCLEROSIS
     Route: 042
     Dates: start: 20060101, end: 20090501
  6. ZESTRIL [Concomitant]
     Indication: BLOOD PRESSURE INCREASED
  7. ATENOLOL [Concomitant]
     Indication: BLOOD PRESSURE INCREASED

REACTIONS (1)
  - GENERAL SYMPTOM [None]
